FAERS Safety Report 7785542-3 (Version None)
Quarter: 2011Q3

REPORT INFORMATION
  Report Type: 
  Country: None (occurrence: None)
  Receive Date: 20110929
  Receipt Date: 20110919
  Transmission Date: 20111222
  Serious: Yes (Hospitalization)
  Sender: FDA-Public Use
  Company Number: FR-JNJFOC-20110908967

PATIENT
  Sex: Female

DRUGS (6)
  1. IMODIUM [Suspect]
     Indication: DIARRHOEA
     Route: 048
     Dates: end: 20110802
  2. LEXOMIL [Concomitant]
  3. LEVOTHYROXINE SODIUM [Concomitant]
  4. ENDOTELON [Concomitant]
  5. TANAKAN [Concomitant]
  6. LOPERAMIDE HCL [Suspect]
     Indication: DIARRHOEA
     Route: 048
     Dates: end: 20110802

REACTIONS (10)
  - DISTURBANCE IN ATTENTION [None]
  - VENTRICULAR TACHYCARDIA [None]
  - LUNG DISORDER [None]
  - RESPIRATORY DEPRESSION [None]
  - MIOSIS [None]
  - COMA [None]
  - ASPARTATE AMINOTRANSFERASE INCREASED [None]
  - ALANINE AMINOTRANSFERASE INCREASED [None]
  - VENTRICULAR EXTRASYSTOLES [None]
  - OVERDOSE [None]
